FAERS Safety Report 24290504 (Version 2)
Quarter: 2024Q3

REPORT INFORMATION
  Report Type: Spontaneous
  Country: GB (occurrence: GB)
  Receive Date: 20240906
  Receipt Date: 20240917
  Transmission Date: 20241017
  Serious: Yes (Other)
  Sender: RANBAXY
  Company Number: GB-SUN PHARMACEUTICAL INDUSTRIES LTD-2024R1-465964

PATIENT
  Sex: Male

DRUGS (3)
  1. CEFTRIAXONE [Suspect]
     Active Substance: CEFTRIAXONE\CEFTRIAXONE SODIUM
     Indication: Gonorrhoea
     Dosage: 1 GRAM
     Route: 030
  2. DOXYCYCLINE [Suspect]
     Active Substance: DOXYCYCLINE\DOXYCYCLINE HYCLATE
     Indication: Gonorrhoea
     Dosage: 100 MILLIGRAM, BID
     Route: 048
  3. SPECTINOMYCIN [Suspect]
     Active Substance: SPECTINOMYCIN
     Indication: Gonorrhoea
     Dosage: 2 GRAM
     Route: 030

REACTIONS (1)
  - Treatment failure [Unknown]
